FAERS Safety Report 8263082 (Version 2)
Quarter: 2012Q4

REPORT INFORMATION
  Report Type: 
  Country: VE (occurrence: VE)
  Receive Date: 20111125
  Receipt Date: 20121204
  Transmission Date: 20130627
  Serious: Yes (Hospitalization, Other)
  Sender: FDA-Public Use
  Company Number: PHHY2011VE17125

PATIENT
  Age: 60 Year
  Sex: Female

DRUGS (4)
  1. ACLASTA [Suspect]
     Indication: OSTEOPOROSIS
     Dosage: 5 mg, yearly
     Route: 042
     Dates: start: 20100819
  2. PROFENIC [Concomitant]
  3. CALCIBON D [Concomitant]
     Dosage: UNK UKN, UNK
  4. STEROIDS NOS [Concomitant]

REACTIONS (7)
  - Non-Hodgkin^s lymphoma [Recovered/Resolved]
  - Breast cancer [Recovered/Resolved]
  - Bone neoplasm [Recovering/Resolving]
  - Urinary incontinence [Not Recovered/Not Resolved]
  - Renal disorder [Not Recovered/Not Resolved]
  - Osteopenia [Unknown]
  - Bone pain [Recovered/Resolved]
